FAERS Safety Report 19463812 (Version 2)
Quarter: 2021Q3

REPORT INFORMATION
  Report Type: Other
  Country: US (occurrence: US)
  Receive Date: 20210625
  Receipt Date: 20210816
  Transmission Date: 20211014
  Serious: Yes (Hospitalization, Other)
  Sender: FDA-Public Use
  Company Number: US-INTERCEPT-PM2021001986

PATIENT
  Sex: Female

DRUGS (2)
  1. OCALIVA [Suspect]
     Active Substance: OBETICHOLIC ACID
     Dosage: 10 MILLIGRAM, QD
     Route: 048
  2. OCALIVA [Suspect]
     Active Substance: OBETICHOLIC ACID
     Indication: PRIMARY BILIARY CHOLANGITIS
     Dosage: 5 MILLIGRAM, QD
     Route: 048
     Dates: start: 20181227

REACTIONS (8)
  - Staphylococcal bacteraemia [Unknown]
  - Sepsis [Unknown]
  - Pneumonia [Unknown]
  - Atrial fibrillation [Unknown]
  - Tachycardia [Unknown]
  - Chest pain [Unknown]
  - Pulmonary congestion [Unknown]
  - Acute respiratory failure [Unknown]
